FAERS Safety Report 23034141 (Version 1)
Quarter: 2023Q4

REPORT INFORMATION
  Report Type: Spontaneous
  Country: US (occurrence: US)
  Receive Date: 20231005
  Receipt Date: 20231005
  Transmission Date: 20240110
  Serious: Yes (Other)
  Sender: FDA-Public Use
  Company Number: US-BIOVITRUM-2023-US-015458

PATIENT
  Sex: Male

DRUGS (2)
  1. GAMIFANT [Suspect]
     Active Substance: EMAPALUMAB-LZSG
     Indication: Anaplastic large cell lymphoma T- and null-cell types
  2. GAMIFANT [Suspect]
     Active Substance: EMAPALUMAB-LZSG
     Indication: Haemophagocytic lymphohistiocytosis

REACTIONS (5)
  - Thrombocytopenia [Unknown]
  - Serum ferritin decreased [Unknown]
  - Platelet count decreased [Unknown]
  - Fibrin D dimer increased [Unknown]
  - Off label use [Unknown]
